FAERS Safety Report 17543646 (Version 5)
Quarter: 2021Q1

REPORT INFORMATION
  Report Type: Spontaneous
  Country: US (occurrence: US)
  Receive Date: 20200316
  Receipt Date: 20210203
  Transmission Date: 20210419
  Serious: No
  Sender: FDA-Public Use
  Company Number: US-BIOGEN-2020BI00840738

PATIENT
  Age: 46 Year
  Sex: Male
  Weight: 79.9 kg

DRUGS (11)
  1. TECFIDERA [Suspect]
     Active Substance: DIMETHYL FUMARATE
     Dosage: STARTING DOSE
     Route: 048
     Dates: start: 20200211
  2. TECFIDERA [Suspect]
     Active Substance: DIMETHYL FUMARATE
     Dosage: MAINTENANCE DOSE
     Route: 048
     Dates: start: 202002
  3. ALBUTEROL. [Concomitant]
     Active Substance: ALBUTEROL
     Route: 065
  4. LISINOPRIL. [Concomitant]
     Active Substance: LISINOPRIL
     Route: 065
  5. TECFIDERA [Suspect]
     Active Substance: DIMETHYL FUMARATE
     Route: 048
     Dates: start: 2020
  6. ARMODAFINIL. [Concomitant]
     Active Substance: ARMODAFINIL
     Route: 065
  7. TECFIDERA [Suspect]
     Active Substance: DIMETHYL FUMARATE
     Route: 048
  8. TECFIDERA [Suspect]
     Active Substance: DIMETHYL FUMARATE
     Route: 048
     Dates: start: 20200219
  9. TECFIDERA [Suspect]
     Active Substance: DIMETHYL FUMARATE
     Indication: MULTIPLE SCLEROSIS
     Route: 048
     Dates: start: 20200207
  10. TECFIDERA [Suspect]
     Active Substance: DIMETHYL FUMARATE
     Route: 048
     Dates: start: 2020
  11. CITALOPRAM [Concomitant]
     Active Substance: CITALOPRAM HYDROBROMIDE
     Route: 065

REACTIONS (22)
  - Memory impairment [Not Recovered/Not Resolved]
  - Illness [Unknown]
  - Feeling hot [Not Recovered/Not Resolved]
  - Hypoaesthesia [Unknown]
  - Irritability [Not Recovered/Not Resolved]
  - Influenza [Unknown]
  - Gastrointestinal disorder [Unknown]
  - Product dose omission in error [Unknown]
  - Photophobia [Not Recovered/Not Resolved]
  - Multiple sclerosis [Not Recovered/Not Resolved]
  - Anxiety [Unknown]
  - Pruritus [Recovered/Resolved]
  - Multiple sclerosis relapse [Unknown]
  - Nausea [Recovered/Resolved]
  - Nasopharyngitis [Unknown]
  - Skin laceration [Unknown]
  - Vomiting [Recovered/Resolved]
  - Balance disorder [Not Recovered/Not Resolved]
  - Flushing [Unknown]
  - Sleep disorder [Not Recovered/Not Resolved]
  - Emotional distress [Unknown]
  - Ear pruritus [Unknown]

NARRATIVE: CASE EVENT DATE: 20200211
